FAERS Safety Report 10247178 (Version 5)
Quarter: 2017Q1

REPORT INFORMATION
  Report Type: Spontaneous
  Country: US (occurrence: US)
  Receive Date: 20140619
  Receipt Date: 20170313
  Transmission Date: 20170428
  Serious: Yes (Disabling, Other)
  Sender: FDA-Public Use
  Company Number: US-009507513-1406USA007424

PATIENT
  Sex: Male
  Weight: 92.97 kg

DRUGS (4)
  1. PROPECIA [Suspect]
     Active Substance: FINASTERIDE
     Indication: ALOPECIA
     Dosage: 1 MG, QD
     Route: 048
     Dates: start: 19991214, end: 20071005
  2. PROSCAR [Suspect]
     Active Substance: FINASTERIDE
     Dosage: 1.25 MG, QD
     Route: 048
     Dates: start: 20010830, end: 20030204
  3. FINASTERIDE. [Suspect]
     Active Substance: FINASTERIDE
     Indication: ALOPECIA
     Dosage: 1 MG, UNK
     Route: 048
  4. FINASTERIDE. [Suspect]
     Active Substance: FINASTERIDE
     Dosage: 5 MG, UNK
     Route: 048
     Dates: start: 20080319, end: 20100218

REACTIONS (36)
  - Fall [Unknown]
  - Pulmonary mass [Unknown]
  - Tinnitus [Unknown]
  - Injury [Unknown]
  - Abdominal pain [Unknown]
  - Oral pain [Unknown]
  - Cough [Unknown]
  - Deafness [Unknown]
  - Sexual dysfunction [Not Recovered/Not Resolved]
  - Erectile dysfunction [Not Recovered/Not Resolved]
  - Gynaecomastia [Unknown]
  - Dyspnoea [Unknown]
  - Fatigue [Unknown]
  - Asthenia [Unknown]
  - Nipple disorder [Unknown]
  - Anxiety [Not Recovered/Not Resolved]
  - Depression [Not Recovered/Not Resolved]
  - Skin disorder [Unknown]
  - Pain [Not Recovered/Not Resolved]
  - Headache [Unknown]
  - Cognitive disorder [Not Recovered/Not Resolved]
  - Ejaculation failure [Not Recovered/Not Resolved]
  - Wrong technique in product usage process [Unknown]
  - Chest pain [Not Recovered/Not Resolved]
  - Poor quality sleep [Unknown]
  - Bone pain [Unknown]
  - Ejaculation disorder [Not Recovered/Not Resolved]
  - Drug administration error [Unknown]
  - Adverse event [Unknown]
  - Hypoaesthesia [Unknown]
  - Paraesthesia [Unknown]
  - Lymphadenopathy [Unknown]
  - Epididymal cyst [Unknown]
  - Emotional distress [Not Recovered/Not Resolved]
  - Feeling abnormal [Not Recovered/Not Resolved]
  - Libido decreased [Not Recovered/Not Resolved]

NARRATIVE: CASE EVENT DATE: 2000
